FAERS Safety Report 4293919-6 (Version None)
Quarter: 2004Q1

REPORT INFORMATION
  Report Type: 
  Country: None (occurrence: None)
  Receive Date: 20040211
  Receipt Date: 20040122
  Transmission Date: 20041129
  Serious: Yes (Hospitalization)
  Sender: FDA-Public Use
  Company Number: USA040155928

PATIENT
  Age: 68 Year
  Sex: Female

DRUGS (9)
  1. FORTEO [Suspect]
     Indication: OSTEOPOROSIS
     Dosage: 20 UG/DAY
     Dates: start: 20030101
  2. OMEPRAZOLE [Concomitant]
  3. PREDNISONE [Concomitant]
  4. NEURONTIN [Concomitant]
  5. MS CONTIN [Concomitant]
  6. QUININE [Concomitant]
  7. BRIMONIDINE [Concomitant]
  8. XALATAN [Concomitant]
  9. CALTRATE (CALCIUM CARBONATE) [Concomitant]

REACTIONS (2)
  - BRONCHITIS [None]
  - CHRONIC OBSTRUCTIVE AIRWAYS DISEASE EXACERBATED [None]
